FAERS Safety Report 13555291 (Version 1)
Quarter: 2017Q2

REPORT INFORMATION
  Report Type: Other
  Country: GB (occurrence: GB)
  Receive Date: 20170517
  Receipt Date: 20170517
  Transmission Date: 20170830
  Serious: Yes (Other)
  Sender: FDA-Public Use
  Company Number: GB-LABORATOIRE HRA PHARMA-2020885

PATIENT
  Age: 26 Year
  Sex: Female
  Weight: 85 kg

DRUGS (3)
  1. SERTRALINE [Concomitant]
     Active Substance: SERTRALINE HYDROCHLORIDE
     Route: 048
  2. CERAZETTE(DESOGESTREL) [Concomitant]
     Route: 048
  3. ELLA [Suspect]
     Active Substance: ULIPRISTAL ACETATE
     Route: 048
     Dates: start: 20170311, end: 20170311

REACTIONS (3)
  - Abortion spontaneous [None]
  - Vaginal haemorrhage [None]
  - Unintended pregnancy [None]

NARRATIVE: CASE EVENT DATE: 20170430
